FAERS Safety Report 16001920 (Version 1)
Quarter: 2019Q1

REPORT INFORMATION
  Report Type: Spontaneous
  Country: FR (occurrence: FR)
  Receive Date: 20190225
  Receipt Date: 20190225
  Transmission Date: 20190418
  Serious: Yes (Hospitalization)
  Sender: FDA-Public Use
  Company Number: FR-PFIZER INC-2019076865

PATIENT
  Age: 56 Year
  Sex: Female
  Weight: 88 kg

DRUGS (2)
  1. POLERY (ACONITE TINCTURE\BELLADONNA LEAF\CODEINE\ETHYLMORPHINE HYDROCHLORIDE\POLYGALA TENUIFOLIA ROOT\SODIUM BENZOATE\SODIUM BROMIDE) [Suspect]
     Active Substance: ACONITE TINCTURE\BELLADONNA LEAF\CODEINE\ETHYLMORPHINE HYDROCHLORIDE\POLYGALA TENUIFOLIA ROOT\SODIUM BENZOATE\SODIUM BROMIDE
     Dosage: AS NEEDED
     Route: 048
     Dates: start: 20180118
  2. ZITHROMAX [Suspect]
     Active Substance: AZITHROMYCIN DIHYDRATE
     Indication: BRONCHITIS
     Dosage: 2 DF, 1X/DAY
     Route: 048
     Dates: start: 20180118, end: 20180120

REACTIONS (1)
  - Vascular purpura [Recovering/Resolving]

NARRATIVE: CASE EVENT DATE: 20180120
